FAERS Safety Report 8104009-6 (Version None)
Quarter: 2012Q1

REPORT INFORMATION
  Report Type: 
  Country: None (occurrence: None)
  Receive Date: 20120201
  Receipt Date: 20120117
  Transmission Date: 20120608
  Serious: No
  Sender: FDA-Public Use
  Company Number: US-BAYER-2012-008234

PATIENT
  Age: 79 Year
  Sex: Female
  Weight: 78 kg

DRUGS (8)
  1. ASPIRIN [Concomitant]
     Dosage: UNK UNK, BID
     Route: 048
  2. METOPROLOL TARTRATE [Concomitant]
  3. ALEVE (CAPLET) [Suspect]
     Indication: ARTHRITIS
     Dosage: 1 UNK, UNK
     Route: 048
  4. AMLODIPINE [Concomitant]
     Dosage: 10 MG, UNK
  5. CALCIUM [Concomitant]
  6. THYROID TAB [Concomitant]
  7. ALEVE (CAPLET) [Suspect]
     Dosage: 2 DF, PRN
     Route: 048
  8. LOSARTAN POTASSIUM [Concomitant]

REACTIONS (1)
  - PAIN [None]
